FAERS Safety Report 7325879-5 (Version None)
Quarter: 2011Q1

REPORT INFORMATION
  Report Type: 
  Country: None (occurrence: None)
  Receive Date: 20110302
  Receipt Date: 20110217
  Transmission Date: 20110831
  Serious: Yes (Hospitalization)
  Sender: FDA-Public Use
  Company Number: PHHY2011DE14905

PATIENT
  Sex: Female

DRUGS (4)
  1. ZOMETA [Suspect]
     Indication: BREAST CANCER
     Dosage: 4 MG, UNK
     Dates: start: 20100909
  2. CALCIUM [Concomitant]
     Dosage: 1000 MG, UNK
  3. FEMARA [Concomitant]
     Dosage: UNK
  4. IBUPROFEN [Concomitant]
     Indication: BONE PAIN
     Dosage: UNK

REACTIONS (3)
  - RENAL DISORDER [None]
  - BLOOD UREA INCREASED [None]
  - BLOOD CREATININE INCREASED [None]
